FAERS Safety Report 4752357-X (Version None)
Quarter: 2005Q3

REPORT INFORMATION
  Report Type: 
  Country: None (occurrence: None)
  Receive Date: 20050824
  Receipt Date: 20050824
  Transmission Date: 20060218
  Serious: Yes (Death)
  Sender: FDA-Public Use
  Company Number: None

PATIENT
  Age: 76 Year
  Sex: Male
  Weight: 87.0906 kg

DRUGS (7)
  1. WARFARIN 5MG [Suspect]
     Indication: ATRIAL FIBRILLATION
     Dosage: 5MG OR 7.5MG DAILY PO
     Route: 048
     Dates: start: 20020531, end: 20050729
  2. ENOXAPARIN SODIUM [Suspect]
     Dosage: 80 MG Q 12 HOURS SQ
     Route: 058
     Dates: start: 20050801, end: 20050801
  3. DOXAZOSIN MESYLATE [Concomitant]
  4. METOPROLOL TARTRATE [Concomitant]
  5. FUROSEMIDE [Concomitant]
  6. GLIPIZIDE [Concomitant]
  7. METFORMIN HCL [Concomitant]

REACTIONS (10)
  - BLOOD PRESSURE INCREASED [None]
  - DIZZINESS [None]
  - FALL [None]
  - INCORRECT DOSE ADMINISTERED [None]
  - INTERNATIONAL NORMALISED RATIO INCREASED [None]
  - LOSS OF CONSCIOUSNESS [None]
  - PUPILLARY REFLEX IMPAIRED [None]
  - SUBDURAL HAEMATOMA [None]
  - SYNCOPE [None]
  - UNRESPONSIVE TO VERBAL STIMULI [None]
